FAERS Safety Report 4450451-4 (Version None)
Quarter: 2004Q3

REPORT INFORMATION
  Report Type: 
  Country: None (occurrence: None)
  Receive Date: 20040915
  Receipt Date: 20040909
  Transmission Date: 20050211
  Serious: Yes (Other)
  Sender: FDA-Public Use
  Company Number: US-MERCK-0409USA00705

PATIENT
  Age: 60 Year
  Sex: Male

DRUGS (1)
  1. CANCIDAS [Suspect]
     Route: 042

REACTIONS (1)
  - STEVENS-JOHNSON SYNDROME [None]
